FAERS Safety Report 10495519 (Version 2)
Quarter: 2014Q4

REPORT INFORMATION
  Report Type: Report from Study
  Country: US (occurrence: US)
  Receive Date: 20141003
  Receipt Date: 20141009
  Transmission Date: 20150528
  Serious: Yes (Hospitalization)
  Sender: FDA-Public Use
  Company Number: US-ACTELION-A-US2014-105776

PATIENT
  Age: 89 Year
  Sex: Female

DRUGS (14)
  1. TRACLEER [Suspect]
     Active Substance: BOSENTAN\BOSENTAN MONOHYDRATE
     Indication: PULMONARY ARTERIAL HYPERTENSION
     Dosage: 125 MG, BID
     Route: 048
     Dates: start: 201303
  2. COUMADIN [Suspect]
     Active Substance: WARFARIN SODIUM
     Indication: PRODUCT USED FOR UNKNOWN INDICATION
     Route: 065
  3. FUROSEMIDE. [Concomitant]
     Active Substance: FUROSEMIDE
  4. LOVAZA [Concomitant]
     Active Substance: OMEGA-3-ACID ETHYL ESTERS
  5. FOLIC ACID. [Concomitant]
     Active Substance: FOLIC ACID
  6. CRANBERRY. [Concomitant]
     Active Substance: CRANBERRY
  7. METOPROLOL TARTRATE. [Concomitant]
     Active Substance: METOPROLOL TARTRATE
  8. ASPIRIN. [Concomitant]
     Active Substance: ASPIRIN
     Dosage: 81 MG, UNK
     Route: 048
  9. ACYCLOVIR. [Concomitant]
     Active Substance: ACYCLOVIR
  10. TRACLEER [Suspect]
     Active Substance: BOSENTAN\BOSENTAN MONOHYDRATE
     Dosage: 62.5 MG, BID
     Route: 048
     Dates: start: 201302
  11. LIPITOR [Concomitant]
     Active Substance: ATORVASTATIN CALCIUM
  12. LEVOTHYROXINE SODIUM. [Concomitant]
     Active Substance: LEVOTHYROXINE SODIUM
  13. CALCIUM +D [Concomitant]
     Active Substance: CALCIUM\VITAMIN D
  14. DIOVAN [Concomitant]
     Active Substance: VALSARTAN
     Dosage: 160 MG, UNK
     Route: 048

REACTIONS (5)
  - Joint swelling [Recovering/Resolving]
  - Overdose [Recovering/Resolving]
  - Oedema peripheral [Recovering/Resolving]
  - Haematoma [Recovering/Resolving]
  - Contusion [Unknown]
